FAERS Safety Report 20748165 (Version 3)
Quarter: 2022Q2

REPORT INFORMATION
  Report Type: Spontaneous
  Country: US (occurrence: US)
  Receive Date: 20220426
  Receipt Date: 20220531
  Transmission Date: 20220721
  Serious: No
  Sender: FDA-Public Use
  Company Number: US-TEVA-2021-US-1965307

PATIENT
  Age: 52 Year
  Sex: Female

DRUGS (1)
  1. NUVIGIL [Suspect]
     Active Substance: ARMODAFINIL
     Route: 065

REACTIONS (5)
  - Feeling abnormal [Unknown]
  - Product supply issue [Unknown]
  - Blood disorder [Unknown]
  - Blood pressure increased [Unknown]
  - Stress [Unknown]
